FAERS Safety Report 10608212 (Version 1)
Quarter: 2014Q4

REPORT INFORMATION
  Report Type: Spontaneous
  Country: US (occurrence: US)
  Receive Date: 20141125
  Receipt Date: 20141125
  Transmission Date: 20150529
  Serious: No
  Sender: FDA-Public Use
  Company Number: US-ELI_LILLY_AND_COMPANY-US201410010929

PATIENT
  Sex: Female

DRUGS (2)
  1. CYMBALTA [Suspect]
     Active Substance: DULOXETINE HYDROCHLORIDE
     Indication: DEPRESSION
     Route: 065
  2. LYRICA [Suspect]
     Active Substance: PREGABALIN
     Indication: STIFF PERSON SYNDROME

REACTIONS (10)
  - Myalgia [Unknown]
  - Arthropathy [Unknown]
  - Arthralgia [Unknown]
  - Asthenia [Unknown]
  - Paraesthesia [Unknown]
  - Psychomotor hyperactivity [Unknown]
  - Depression [Not Recovered/Not Resolved]
  - Tremor [Unknown]
  - Constipation [Unknown]
  - Hypoaesthesia [Unknown]
